FAERS Safety Report 5530899-7 (Version None)
Quarter: 2007Q4

REPORT INFORMATION
  Report Type: 
  Country: None (occurrence: None)
  Receive Date: 20071130
  Receipt Date: 20071119
  Transmission Date: 20080405
  Serious: Yes (Other)
  Sender: FDA-Public Use
  Company Number: DE-ASTRAZENECA-2007PK02466

PATIENT
  Age: 52 Year
  Sex: Female

DRUGS (2)
  1. ARIMIDEX [Suspect]
     Indication: BREAST CANCER FEMALE
     Route: 048
     Dates: start: 20070101
  2. ZOLADEX [Concomitant]
     Indication: BREAST CANCER FEMALE
     Route: 058

REACTIONS (6)
  - ABDOMINAL PAIN [None]
  - ANAPHYLACTOID REACTION [None]
  - LARYNGEAL OEDEMA [None]
  - MALAISE [None]
  - NAUSEA [None]
  - VOMITING [None]
